FAERS Safety Report 10670002 (Version 2)
Quarter: 2014Q4

REPORT INFORMATION
  Report Type: Report from Study
  Country: JP (occurrence: JP)
  Receive Date: 20141223
  Receipt Date: 20141223
  Transmission Date: 20150529
  Serious: Yes (Hospitalization)
  Sender: FDA-Public Use
  Company Number: JP-ROCHE-1449116

PATIENT
  Age: 70 Year
  Sex: Male
  Weight: 73 kg

DRUGS (10)
  1. BONALON [Concomitant]
     Active Substance: ALENDRONATE SODIUM
     Route: 048
  2. NU-LOTAN [Concomitant]
     Active Substance: LOSARTAN POTASSIUM
     Route: 048
  3. METHOXY POLYETHYLENE GLYCOL-EPOETIN BETA [Suspect]
     Active Substance: PEGZEREPOETIN ALFA
     Indication: NEPHROGENIC ANAEMIA
     Route: 065
     Dates: start: 20140203, end: 20140625
  4. TAKEPRON [Concomitant]
     Active Substance: LANSOPRAZOLE
     Route: 048
  5. ASPENONE [Concomitant]
     Route: 048
  6. HERBESSER [Concomitant]
     Active Substance: DILTIAZEM HYDROCHLORIDE
     Route: 048
  7. CALTAN [Concomitant]
     Active Substance: CALCIUM CARBONATE
     Route: 048
  8. RENAGEL [Concomitant]
     Active Substance: SEVELAMER HYDROCHLORIDE
     Route: 048
  9. REBAMIPIDE [Concomitant]
     Active Substance: REBAMIPIDE
     Route: 048
  10. BAYASPIRIN [Concomitant]
     Active Substance: ASPIRIN
     Route: 048

REACTIONS (2)
  - Gastric antral vascular ectasia [Recovered/Resolved]
  - Petechiae [Unknown]

NARRATIVE: CASE EVENT DATE: 20140303
